FAERS Safety Report 20289947 (Version 1)
Quarter: 2022Q1

REPORT INFORMATION
  Report Type: Spontaneous
  Country: US (occurrence: None)
  Receive Date: 20220103
  Receipt Date: 20220103
  Transmission Date: 20220423
  Serious: No
  Sender: FDA-Public Use
  Company Number: None

PATIENT
  Sex: Female

DRUGS (2)
  1. CAPECITABINE [Suspect]
     Active Substance: CAPECITABINE
     Indication: Breast cancer
     Dosage: FREQUENCY : AS DIRECTED;  14 DAYS ON AND 7 DAYS OFF?
     Route: 048
     Dates: start: 202106
  2. CAPECITABINE [Suspect]
     Active Substance: CAPECITABINE
     Indication: Brain neoplasm malignant

REACTIONS (3)
  - Drug ineffective [None]
  - Disease progression [None]
  - Therapy change [None]
